FAERS Safety Report 15654165 (Version 3)
Quarter: 2019Q1

REPORT INFORMATION
  Report Type: Report from Study
  Country: CA (occurrence: CA)
  Receive Date: 20181125
  Receipt Date: 20190116
  Transmission Date: 20190417
  Serious: Yes (Hospitalization, Other)
  Sender: FDA-Public Use
  Company Number: CA-BRISTOL-MYERS SQUIBB COMPANY-BMS-2018-092059

PATIENT
  Age: 55 Year
  Sex: Male

DRUGS (2)
  1. YERVOY [Suspect]
     Active Substance: IPILIMUMAB
     Indication: RENAL CELL CARCINOMA
     Dosage: 3 MG/KG, Q3WK
     Route: 042
     Dates: start: 20180830
  2. NIVOLUMAB [Suspect]
     Active Substance: NIVOLUMAB
     Indication: RENAL CELL CARCINOMA
     Dosage: 1 MG/KG, Q3WK
     Route: 042
     Dates: start: 20180830

REACTIONS (14)
  - Irritability [Not Recovered/Not Resolved]
  - Insomnia [Not Recovered/Not Resolved]
  - Pain [Unknown]
  - Abdominal pain [Not Recovered/Not Resolved]
  - Large intestine perforation [Recovering/Resolving]
  - Paraesthesia [Unknown]
  - Off label use [Unknown]
  - Diverticulitis [Recovering/Resolving]
  - Fatigue [Not Recovered/Not Resolved]
  - Headache [Not Recovered/Not Resolved]
  - Rash pruritic [Unknown]
  - Colostomy infection [Unknown]
  - Diarrhoea [Not Recovered/Not Resolved]
  - Chromaturia [Unknown]

NARRATIVE: CASE EVENT DATE: 20180830
